FAERS Safety Report 11089661 (Version 1)
Quarter: 2015Q2

REPORT INFORMATION
  Report Type: Spontaneous
  Country: CH (occurrence: CH)
  Receive Date: 20150505
  Receipt Date: 20150505
  Transmission Date: 20150821
  Serious: Yes (Hospitalization, Other)
  Sender: FDA-Public Use
  Company Number: CH-009507513-1505CHE000138

PATIENT
  Age: 50 Year
  Sex: Male

DRUGS (4)
  1. ALCOHOL. [Suspect]
     Active Substance: ALCOHOL
     Dosage: UNK
     Route: 048
     Dates: start: 20150228, end: 20150228
  2. LORAZEPAM. [Suspect]
     Active Substance: LORAZEPAM
     Dosage: 4 DF, ONCE
     Route: 048
     Dates: start: 20150228, end: 20150228
  3. JANUMET [Suspect]
     Active Substance: METFORMIN HYDROCHLORIDE\SITAGLIPTIN PHOSPHATE
     Dosage: 25 DF, ONCE (TOTAL DAILY DOSE 1250/25000MG)
     Route: 048
     Dates: start: 20150228, end: 20150228
  4. PREGABALIN. [Suspect]
     Active Substance: PREGABALIN
     Dosage: 36 DF, ONCE
     Route: 048
     Dates: start: 20150228, end: 20150228

REACTIONS (5)
  - Hypocalcaemia [Unknown]
  - Metabolic acidosis [Recovered/Resolved]
  - PCO2 decreased [Unknown]
  - Coma [Unknown]
  - Suicide attempt [Recovered/Resolved]

NARRATIVE: CASE EVENT DATE: 20150228
